FAERS Safety Report 8987699 (Version 2)
Quarter: 2013Q1

REPORT INFORMATION
  Report Type: Spontaneous
  Country: TR (occurrence: TR)
  Receive Date: 20121227
  Receipt Date: 20130206
  Transmission Date: 20140127
  Serious: Yes (Other)
  Sender: FDA-Public Use
  Company Number: TR-JNJFOC-20121209802

PATIENT
  Age: 8 Year
  Sex: Male

DRUGS (1)
  1. RISPERDAL [Suspect]
     Indication: ABNORMAL BEHAVIOUR
     Route: 048

REACTIONS (1)
  - Paroxysmal perceptual alteration [Recovered/Resolved]
